FAERS Safety Report 7583902 (Version 2)
Quarter: 2012Q4

REPORT INFORMATION
  Report Type: Report from Study
  Country: US (occurrence: US)
  Receive Date: 20100914
  Receipt Date: 20121102
  Transmission Date: 20130627
  Serious: Yes (Other)
  Sender: FDA-Public Use
  Company Number: US-SANOFI-AVENTIS-2010SA052706

PATIENT

DRUGS (4)
  1. OXALIPLATIN [Suspect]
     Indication: METASTATIC COLORECTAL CANCER
     Dosage: given over 2 hours, total 28 days cycle
day 1 and day 15
     Route: 042
  2. FLUOROURACIL [Suspect]
     Indication: METASTATIC COLORECTAL CANCER
     Dosage: form: bolus; on day 1 and 15, total 28 days cycle
     Route: 040
  3. CAPECITABINE [Suspect]
     Indication: METASTATIC COLORECTAL CANCER
     Dosage: given every 8 hours for 6 doses starting on day 1 and 15, total 28 days cycle
     Route: 048
  4. LEUCOVORIN [Suspect]
     Indication: METASTATIC COLORECTAL CANCER
     Dosage: form: bolus, total 28 days cycle
day 1 and day 15
     Route: 040

REACTIONS (1)
  - Urogenital fistula [Unknown]
